FAERS Safety Report 23035300 (Version 1)
Quarter: 2023Q4

REPORT INFORMATION
  Report Type: Spontaneous
  Country: US (occurrence: US)
  Receive Date: 20231005
  Receipt Date: 20231005
  Transmission Date: 20240110
  Serious: Yes (Hospitalization, Other)
  Sender: FDA-Public Use
  Company Number: US-MLMSERVICE-20230921-4558675-1

PATIENT
  Age: 35 Year
  Sex: Male

DRUGS (6)
  1. HALDOL DECANOATE [Suspect]
     Active Substance: HALOPERIDOL DECANOATE
     Indication: Psychotic disorder
     Dosage: TEN DAYS AFTER THE INITIAL HALOPERIDOL DECANOATE DOSE
     Route: 030
     Dates: start: 2021, end: 2021
  2. HALDOL DECANOATE [Suspect]
     Active Substance: HALOPERIDOL DECANOATE
     Dosage: AT A JAIL SITE OUTSIDE OF THE COUNTY.
     Route: 030
     Dates: start: 2021, end: 2021
  3. RISPERDAL [Suspect]
     Active Substance: RISPERIDONE
     Indication: Psychotic disorder
     Route: 048
     Dates: start: 2021, end: 2021
  4. RISPERDAL [Suspect]
     Active Substance: RISPERIDONE
     Dosage: RISPERIDONE; 1 MG PO BID; DAY 32-38
     Route: 048
     Dates: start: 2021, end: 2021
  5. RISPERDAL [Suspect]
     Active Substance: RISPERIDONE
     Route: 048
     Dates: start: 2021, end: 2021
  6. VALPROIC ACID [Concomitant]
     Active Substance: VALPROIC ACID

REACTIONS (4)
  - Suicidal ideation [Recovered/Resolved]
  - Lactic acidosis [Recovered/Resolved]
  - Catatonia [Recovering/Resolving]
  - Parkinsonism [Recovering/Resolving]

NARRATIVE: CASE EVENT DATE: 20210101
